FAERS Safety Report 10471067 (Version 5)
Quarter: 2014Q4

REPORT INFORMATION
  Report Type: Report from Study
  Country: AU (occurrence: AU)
  Receive Date: 20140923
  Receipt Date: 20141021
  Transmission Date: 20150528
  Serious: Yes (Hospitalization, Other)
  Sender: FDA-Public Use
  Company Number: PHHY2014AU115365

PATIENT
  Age: 64 Year
  Sex: Female
  Weight: 62 kg

DRUGS (16)
  1. PROPRANOLOL [Concomitant]
     Active Substance: PROPRANOLOL\PROPRANOLOL HYDROCHLORIDE
     Indication: PRODUCT USED FOR UNKNOWN INDICATION
     Dosage: 10 MG, QD
     Route: 048
  2. ASPIRIN. [Concomitant]
     Active Substance: ASPIRIN
     Indication: STENT PLACEMENT
     Dosage: 100 MG, MANE
     Route: 048
  3. METFORMIN [Concomitant]
     Active Substance: METFORMIN HYDROCHLORIDE
     Indication: TYPE 2 DIABETES MELLITUS
     Dosage: 500 MG, BID
     Route: 048
  4. DOBUTAMINE [Concomitant]
     Active Substance: DOBUTAMINE\DOBUTAMINE HYDROCHLORIDE
     Indication: PRODUCT USED FOR UNKNOWN INDICATION
     Dosage: UP TO 40 UG/KG/MIN
     Route: 065
     Dates: start: 20140716
  5. CLOZARIL [Suspect]
     Active Substance: CLOZAPINE
     Indication: SCHIZOPHRENIA
     Dosage: UNK
     Route: 048
     Dates: start: 20140725, end: 20140812
  6. ARIPIPRAZOLE. [Concomitant]
     Active Substance: ARIPIPRAZOLE
     Indication: PRODUCT USED FOR UNKNOWN INDICATION
     Dosage: 25 MG, MORNING
     Route: 048
  7. RAMIPRIL. [Concomitant]
     Active Substance: RAMIPRIL
     Indication: HYPERTENSION
     Dosage: 2.5 MG, MANE
     Route: 048
  8. TICAGRELOR [Concomitant]
     Active Substance: TICAGRELOR
     Indication: STENT PLACEMENT
     Dosage: 90 MG, BID
     Route: 048
  9. GTN [Concomitant]
     Active Substance: NITROGLYCERIN
     Indication: PRODUCT USED FOR UNKNOWN INDICATION
     Dosage: 400 UG, PRN
     Route: 060
  10. BENZTROPINE [Concomitant]
     Active Substance: BENZTROPINE
     Indication: TREMOR
     Dosage: 1 MG MORNING AND 0.5 MG NIGHT
     Route: 065
  11. AMISULPRIDE [Concomitant]
     Active Substance: AMISULPRIDE
     Indication: PRODUCT USED FOR UNKNOWN INDICATION
     Dosage: 400 MG, NOCTE
     Route: 048
  12. METOPROLOL [Concomitant]
     Active Substance: METOPROLOL
     Indication: CARDIAC DISORDER
     Dosage: 12.5 MG, BID
     Route: 048
  13. PALIPERIDONE [Concomitant]
     Active Substance: PALIPERIDONE
     Indication: PRODUCT USED FOR UNKNOWN INDICATION
     Dosage: 75 MG, FOUR WEEKLY
     Route: 030
  14. ASENAPINE [Concomitant]
     Active Substance: ASENAPINE
     Indication: PRODUCT USED FOR UNKNOWN INDICATION
     Dosage: 10 MG, NIGHT
     Route: 065
  15. ROSUVASTATIN [Concomitant]
     Active Substance: ROSUVASTATIN
     Indication: DYSLIPIDAEMIA
     Dosage: 10 MG, NOCTE
     Route: 048
  16. ARIPIPRAZOLE. [Concomitant]
     Active Substance: ARIPIPRAZOLE
     Dosage: UNK
     Route: 065

REACTIONS (64)
  - Neuroleptic malignant syndrome [Unknown]
  - Ischaemia [Not Recovered/Not Resolved]
  - Blood calcium decreased [Recovered/Resolved]
  - Orthostatic hypotension [Unknown]
  - Eosinophil count decreased [Recovered/Resolved]
  - Alanine aminotransferase increased [Recovered/Resolved]
  - Exercise tolerance decreased [Unknown]
  - Pyrexia [Unknown]
  - Platelet count increased [Not Recovered/Not Resolved]
  - Red cell distribution width increased [Not Recovered/Not Resolved]
  - Tricuspid valve incompetence [Unknown]
  - Blood glucose increased [Recovered/Resolved]
  - Blood creatine phosphokinase increased [Recovered/Resolved]
  - Chest pain [Unknown]
  - Chest discomfort [Recovered/Resolved]
  - Coronary artery disease [Unknown]
  - Pleural effusion [Unknown]
  - Aspartate aminotransferase increased [Recovered/Resolved]
  - Acute myocardial infarction [Unknown]
  - Blood pressure systolic increased [Unknown]
  - Cardiac disorder [Unknown]
  - Mean cell volume decreased [Recovered/Resolved]
  - Blood creatinine decreased [Not Recovered/Not Resolved]
  - Lymphocyte percentage decreased [Recovered/Resolved]
  - Monocyte count decreased [Recovered/Resolved]
  - Gamma-glutamyltransferase increased [Not Recovered/Not Resolved]
  - Electrocardiogram QRS complex abnormal [Unknown]
  - Electrocardiogram abnormal [Unknown]
  - Somnolence [Unknown]
  - Dizziness [Unknown]
  - Protein total decreased [Not Recovered/Not Resolved]
  - Blood urea decreased [Recovered/Resolved]
  - Malaise [Recovered/Resolved]
  - Neutrophil count increased [Recovered/Resolved]
  - Monocyte count increased [Recovered/Resolved]
  - Blood creatine phosphokinase MB increased [Unknown]
  - Hypotension [Unknown]
  - Delirium [Unknown]
  - Left atrial dilatation [Unknown]
  - Electrocardiogram QT prolonged [Unknown]
  - Haematocrit decreased [Not Recovered/Not Resolved]
  - Blood phosphorus decreased [Recovered/Resolved]
  - Mean cell haemoglobin decreased [Not Recovered/Not Resolved]
  - Mitral valve incompetence [Unknown]
  - Lymphocyte count decreased [Not Recovered/Not Resolved]
  - Hypercholesterolaemia [Unknown]
  - Myocarditis [Recovered/Resolved]
  - Acute coronary syndrome [Unknown]
  - Blood potassium decreased [Recovered/Resolved]
  - Diastolic dysfunction [Unknown]
  - Haemoglobin decreased [Not Recovered/Not Resolved]
  - Troponin T increased [Not Recovered/Not Resolved]
  - Blood chloride decreased [Unknown]
  - Neutrophil percentage increased [Recovered/Resolved]
  - Sinus tachycardia [Recovered/Resolved]
  - Blood alkaline phosphatase increased [Not Recovered/Not Resolved]
  - Dyspnoea [Unknown]
  - Mental disorder [Unknown]
  - Pericardial effusion [Unknown]
  - Blood albumin decreased [Recovered/Resolved]
  - Blood lactate dehydrogenase increased [Unknown]
  - Red blood cell count decreased [Not Recovered/Not Resolved]
  - White blood cell count increased [Recovered/Resolved]
  - Platelet count decreased [Recovered/Resolved]

NARRATIVE: CASE EVENT DATE: 20140726
